FAERS Safety Report 18132499 (Version 1)
Quarter: 2020Q3

REPORT INFORMATION
  Report Type: Spontaneous
  Country: CA (occurrence: CA)
  Receive Date: 20200811
  Receipt Date: 20200811
  Transmission Date: 20201103
  Serious: Yes (Other)
  Sender: FDA-Public Use
  Company Number: CA-B.I. PHARMACEUTICALS,INC./RIDGEFIELD-2020-BI-040473

PATIENT
  Age: 52 Year
  Sex: Male

DRUGS (23)
  1. LAMIVUDINE. [Suspect]
     Active Substance: LAMIVUDINE
     Indication: HIV INFECTION
     Route: 065
  2. NELFINAVIR [Suspect]
     Active Substance: NELFINAVIR
     Indication: HIV INFECTION
     Route: 065
  3. SAQUINAVIR [Suspect]
     Active Substance: SAQUINAVIR
     Indication: HIV INFECTION
     Route: 048
  4. VIDEX EC [Suspect]
     Active Substance: DIDANOSINE
     Indication: HIV INFECTION
     Dosage: CAPSULE, ENTERIC COATED
     Route: 048
  5. ABACAVIR. [Suspect]
     Active Substance: ABACAVIR
     Indication: HIV INFECTION
     Route: 065
  6. LOPINAVIR [Suspect]
     Active Substance: LOPINAVIR
     Indication: HIV INFECTION
     Route: 065
  7. RESCRIPTOR [Suspect]
     Active Substance: DELAVIRDINE MESYLATE
     Indication: PRODUCT USED FOR UNKNOWN INDICATION
     Route: 065
  8. EFAVIRENZ. [Suspect]
     Active Substance: EFAVIRENZ
     Indication: HIV INFECTION
     Route: 048
  9. INTELENCE [Suspect]
     Active Substance: ETRAVIRINE
     Indication: HIV INFECTION
     Route: 048
  10. NORVIR [Suspect]
     Active Substance: RITONAVIR
     Indication: HIV INFECTION
     Route: 065
  11. DARUNAVIR [Suspect]
     Active Substance: DARUNAVIR
     Indication: HIV INFECTION
     Route: 048
  12. KALETRA [Suspect]
     Active Substance: LOPINAVIR\RITONAVIR
     Indication: HIV INFECTION
     Route: 065
  13. TENOFOVIR [Suspect]
     Active Substance: TENOFOVIR
     Indication: HIV INFECTION
     Route: 048
  14. VIREAD [Suspect]
     Active Substance: TENOFOVIR DISOPROXIL FUMARATE
     Indication: HIV INFECTION
     Route: 048
  15. ZIDOVUDINE. [Suspect]
     Active Substance: ZIDOVUDINE
     Indication: HIV INFECTION
     Route: 065
  16. DIDANOSINE. [Suspect]
     Active Substance: DIDANOSINE
     Indication: HIV INFECTION
     Route: 065
  17. INDINAVIR SULFATE [Suspect]
     Active Substance: INDINAVIR SULFATE
     Indication: HIV INFECTION
     Route: 048
  18. RITONAVIR. [Suspect]
     Active Substance: RITONAVIR
     Indication: HIV INFECTION
     Route: 065
  19. VIRAMUNE [Suspect]
     Active Substance: NEVIRAPINE
     Indication: HIV INFECTION
     Route: 065
  20. RALTEGRAVIR POTASSIUM [Suspect]
     Active Substance: RALTEGRAVIR POTASSIUM
     Indication: HIV INFECTION
     Route: 048
  21. SUSTIVA [Suspect]
     Active Substance: EFAVIRENZ
     Indication: HIV INFECTION
     Route: 048
  22. T?20 [Suspect]
     Active Substance: ENFUVIRTIDE
     Indication: HIV INFECTION
     Route: 058
  23. ZERIT [Suspect]
     Active Substance: STAVUDINE
     Indication: HIV INFECTION
     Route: 065

REACTIONS (5)
  - Eyelid ptosis [Unknown]
  - Lipodystrophy acquired [Unknown]
  - Diplopia [Unknown]
  - Progressive external ophthalmoplegia [Unknown]
  - Mitochondrial toxicity [Unknown]
